FAERS Safety Report 9333208 (Version 1)
Quarter: 2013Q2

REPORT INFORMATION
  Report Type: Spontaneous
  Country: US (occurrence: US)
  Receive Date: 20130606
  Receipt Date: 20130606
  Transmission Date: 20140414
  Serious: Yes (Other)
  Sender: FDA-Public Use
  Company Number: US-BAYER-2013-067006

PATIENT
  Age: 82 Year
  Sex: Female
  Weight: 52.15 kg

DRUGS (3)
  1. ALEVE TABLET [Suspect]
     Indication: ARTHRITIS
     Dosage: 2 DF, QD
     Route: 048
     Dates: start: 201205, end: 20130529
  2. METOPROLOL [Concomitant]
  3. AMLODIPINE [Concomitant]

REACTIONS (5)
  - Dehydration [Not Recovered/Not Resolved]
  - Dehydration [Not Recovered/Not Resolved]
  - Pollakiuria [Not Recovered/Not Resolved]
  - Skin wrinkling [Not Recovered/Not Resolved]
  - Incorrect drug administration duration [None]
